FAERS Safety Report 24025791 (Version 1)
Quarter: 2024Q2

REPORT INFORMATION
  Report Type: Spontaneous
  Country: DE (occurrence: DE)
  Receive Date: 20240628
  Receipt Date: 20240628
  Transmission Date: 20240716
  Serious: Yes (Other)
  Sender: FDA-Public Use
  Company Number: DE-TEVA-VS-3213743

PATIENT
  Age: 70 Year
  Sex: Female

DRUGS (2)
  1. PRIMIDONE [Suspect]
     Active Substance: PRIMIDONE
     Indication: Epilepsy
     Route: 048
  2. VALPROIC ACID [Concomitant]
     Active Substance: VALPROIC ACID
     Dosage: ERGENYL CHRONO 300

REACTIONS (6)
  - Seizure [Unknown]
  - Arthralgia [Unknown]
  - Periarthritis [Unknown]
  - Fatigue [Unknown]
  - Muscle spasms [Unknown]
  - Ear infection [Unknown]
